FAERS Safety Report 9451092 (Version 1)
Quarter: 2013Q3

REPORT INFORMATION
  Report Type: Spontaneous
  Country: DE (occurrence: DE)
  Receive Date: 20130809
  Receipt Date: 20130809
  Transmission Date: 20140515
  Serious: Yes (Disabling, Other)
  Sender: FDA-Public Use
  Company Number: DE-009507513-1308DEU002610

PATIENT
  Sex: Male
  Weight: 60 kg

DRUGS (1)
  1. DORZOLAMIDE HYDROCHLORIDE [Suspect]
     Indication: GLAUCOMA
     Dosage: 3X TAGL DAILY
     Route: 047
     Dates: start: 2011

REACTIONS (1)
  - Polyneuropathy [Not Recovered/Not Resolved]
